APPROVED DRUG PRODUCT: ESCITALOPRAM OXALATE
Active Ingredient: ESCITALOPRAM OXALATE
Strength: EQ 5MG BASE
Dosage Form/Route: TABLET;ORAL
Application: A078604 | Product #001 | TE Code: AB
Applicant: INVAGEN PHARMACEUTICALS INC
Approved: Sep 11, 2012 | RLD: No | RS: No | Type: RX